FAERS Safety Report 8502136-2 (Version None)
Quarter: 2012Q3

REPORT INFORMATION
  Report Type: 
  Country: None (occurrence: None)
  Receive Date: 20120711
  Receipt Date: 20120703
  Transmission Date: 20120928
  Serious: Yes (Other)
  Sender: FDA-Public Use
  Company Number: HR-JNJFOC-20120702061

PATIENT
  Age: 6 Decade
  Sex: Male

DRUGS (12)
  1. SIMPONI [Suspect]
     Route: 058
     Dates: start: 20120312
  2. ARAVA [Concomitant]
     Indication: PSORIATIC ARTHROPATHY
     Route: 065
     Dates: start: 20110101
  3. SIMPONI [Suspect]
     Route: 058
     Dates: start: 20111107
  4. SULFASALAZINE [Concomitant]
     Indication: PSORIATIC ARTHROPATHY
     Route: 065
     Dates: start: 19890101
  5. SIMPONI [Suspect]
     Indication: PSORIATIC ARTHROPATHY
     Route: 058
     Dates: start: 20120118
  6. SIMPONI [Suspect]
     Route: 058
     Dates: start: 20111012
  7. SIMPONI [Suspect]
     Route: 058
     Dates: start: 20110905
  8. METHOTREXATE [Suspect]
     Indication: PSORIATIC ARTHROPATHY
     Route: 065
     Dates: start: 19890101, end: 20120518
  9. SIMPONI [Suspect]
     Route: 058
     Dates: start: 20120416
  10. MEDROL [Concomitant]
     Indication: PSORIATIC ARTHROPATHY
     Dosage: 6 /18 MG
     Route: 065
     Dates: start: 19890101
  11. SIMPONI [Suspect]
     Route: 058
     Dates: start: 20110213
  12. SIMPONI [Suspect]
     Route: 058
     Dates: start: 20110804

REACTIONS (3)
  - DYSPEPSIA [None]
  - MYOCARDIAL INFARCTION [None]
  - GASTRIC ULCER [None]
